FAERS Safety Report 4613685-1 (Version None)
Quarter: 2005Q1

REPORT INFORMATION
  Report Type: 
  Country: None (occurrence: None)
  Receive Date: 20050315
  Receipt Date: 20050223
  Transmission Date: 20050727
  Serious: No
  Sender: FDA-Public Use
  Company Number: 10434

PATIENT
  Age: 30 Year
  Sex: Female

DRUGS (1)
  1. CYTARABINE [Suspect]
     Dosage: 200 MG/M2 PER_CYCLE IV
     Route: 042

REACTIONS (3)
  - BLOOD CREATININE INCREASED [None]
  - BODY TEMPERATURE INCREASED [None]
  - WHITE BLOOD CELL COUNT DECREASED [None]
